FAERS Safety Report 7547508 (Version 2)
Quarter: 2013Q1

REPORT INFORMATION
  Report Type: Report from Study
  Country: NZ (occurrence: NZ)
  Receive Date: 20100819
  Receipt Date: 20130121
  Transmission Date: 20140127
  Serious: Yes (Hospitalization)
  Sender: FDA-Public Use
  Company Number: NZ-PURDUE-USA-2010-0045576

PATIENT
  Age: 52 Year
  Sex: Male
  Weight: 114.4 kg

DRUGS (12)
  1. BTDS PATCH [Suspect]
     Indication: DIABETIC NEUROPATHY
     Dosage: 20 MCG, Q1H
     Dates: start: 20100713
  2. CILAZAPRIL [Concomitant]
     Dosage: UNK
     Dates: start: 20100601
  3. ASPIRIN [Concomitant]
     Dosage: UNK
     Dates: start: 20100622
  4. GLYCERYL TRINITRATE [Concomitant]
     Dosage: UNK
     Dates: start: 20100622
  5. OMEPRAZOLE [Concomitant]
     Dosage: UNK
     Dates: start: 20100622
  6. FRUSEMIDE [Concomitant]
     Dosage: UNK
     Dates: start: 20100629
  7. METOPROLOL                         /00376902/ [Concomitant]
     Dosage: UNK
     Dates: start: 20100720
  8. SIMVASTATIN [Concomitant]
     Dosage: UNK
     Dates: start: 20100709
  9. PROTAPHANE [Concomitant]
     Dosage: UNK
     Dates: start: 201001
  10. NOVORAPID [Concomitant]
     Dosage: UNK
     Dates: start: 201001
  11. AMITRIPTYLINE [Concomitant]
     Dosage: UNK
     Dates: start: 20100329
  12. METFORMIN [Concomitant]
     Dosage: UNK
     Dates: start: 20100611

REACTIONS (1)
  - Angina unstable [Recovered/Resolved]
